FAERS Safety Report 9762198 (Version 1)
Quarter: 2013Q4

REPORT INFORMATION
  Report Type: Spontaneous
  Country: ES (occurrence: None)
  Receive Date: 20131213
  Receipt Date: 20131213
  Transmission Date: 20140711
  Serious: Yes (Hospitalization)
  Sender: FDA-Public Use
  Company Number: 2013P1021710

PATIENT
  Age: 47 Year
  Sex: Male

DRUGS (3)
  1. PHENYTOIN [Suspect]
  2. LAMOTRIGINE [Suspect]
  3. CLOBAZAM [Concomitant]

REACTIONS (3)
  - Hepatic failure [None]
  - Drug reaction with eosinophilia and systemic symptoms [None]
  - Renal failure acute [None]
